FAERS Safety Report 4464827-2 (Version None)
Quarter: 2004Q4

REPORT INFORMATION
  Report Type: 
  Country: None (occurrence: None)
  Receive Date: 20041004
  Receipt Date: 20031013
  Transmission Date: 20050328
  Serious: Yes (Hospitalization)
  Sender: FDA-Public Use
  Company Number: 349644

PATIENT
  Age: 69 Year
  Sex: Female

DRUGS (14)
  1. COREG [Suspect]
     Dosage: 50MG TWICE PER DAY
     Route: 048
     Dates: start: 20020201
  2. CALTRATE [Concomitant]
  3. VITAMIN E [Concomitant]
  4. CLARINEX [Concomitant]
  5. LISINOPRIL [Concomitant]
  6. VIOXX [Concomitant]
  7. LANTUS [Concomitant]
  8. GLUCOPHAGE [Concomitant]
  9. GLUCOTROL [Concomitant]
  10. WARFARIN SODIUM [Concomitant]
  11. SYNTHROID [Concomitant]
  12. FUROSEMIDE [Concomitant]
  13. LIPITOR [Concomitant]
  14. OXYGEN [Concomitant]

REACTIONS (1)
  - SYNCOPE [None]
